FAERS Safety Report 6471816 (Version 2)
Quarter: 2012Q4

REPORT INFORMATION
  Report Type: 
  Country: BR (occurrence: BR)
  Receive Date: 20071120
  Receipt Date: 20121130
  Transmission Date: 20130627
  Serious: Yes (Hospitalization, Other)
  Sender: FDA-Public Use
  Company Number: PHBS2007BR18896

PATIENT
  Age: 63 Year
  Sex: Female
  Weight: 70 kg

DRUGS (7)
  1. DIOVAN AMLO FIX [Suspect]
     Indication: HYPERTENSION
     Dosage: 1 DF, daily
     Route: 048
  2. NATRILIX [Suspect]
     Indication: HYPERTENSION
     Dosage: 1.25 mg, UNK
  3. HIGROTON [Concomitant]
     Indication: HYPERTENSION
     Dosage: 12.5 mg/day
     Route: 048
  4. VENLAFAXINE HYDROCHLORIDE [Concomitant]
     Indication: DEPRESSION
     Dosage: 75 mg, at morning
  5. VENLAFAXINE HYDROCHLORIDE [Concomitant]
     Indication: PANIC DISORDER
  6. SERTRALINE HYDROCHLORIDE [Concomitant]
     Indication: BONE DISORDER
     Dosage: 1 DF, per week
  7. RIVOTRIL [Concomitant]
     Indication: SLEEP DISORDER
     Dosage: 1 DF, at night

REACTIONS (10)
  - Femur fracture [Not Recovered/Not Resolved]
  - Joint swelling [Unknown]
  - Fall [Unknown]
  - Blood pressure increased [Recovering/Resolving]
  - Depression [Not Recovered/Not Resolved]
  - Panic disorder [Not Recovered/Not Resolved]
  - Neck pain [Recovering/Resolving]
  - Malaise [Recovering/Resolving]
  - Headache [Recovering/Resolving]
  - Pain [Not Recovered/Not Resolved]
